FAERS Safety Report 17234165 (Version 1)
Quarter: 2020Q1

REPORT INFORMATION
  Report Type: Spontaneous
  Country: US (occurrence: US)
  Receive Date: 20200106
  Receipt Date: 20200106
  Transmission Date: 20200409
  Serious: No
  Sender: FDA-Public Use
  Company Number: US-DRREDDYS-USA/USA/19/0117752

PATIENT
  Sex: Female

DRUGS (1)
  1. TETRABENAZINE TABLETS 12.5MG TABLETS 112 CT [Suspect]
     Active Substance: TETRABENAZINE
     Indication: BALANCE DISORDER
     Route: 048

REACTIONS (2)
  - Drug ineffective [Unknown]
  - Product quality issue [Unknown]
